FAERS Safety Report 9805913 (Version 3)
Quarter: 2014Q2

REPORT INFORMATION
  Report Type: Spontaneous
  Country: US (occurrence: US)
  Receive Date: 20140109
  Receipt Date: 20140529
  Transmission Date: 20141212
  Serious: Yes (Death, Hospitalization, Other)
  Sender: FDA-Public Use
  Company Number: US-B.I. PHARMACEUTICALS,INC./RIDGEFIELD-2014-BI-00453BP

PATIENT
  Sex: Male
  Weight: 124.28 kg

DRUGS (13)
  1. PRADAXA [Suspect]
     Indication: ATRIAL FIBRILLATION
     Dosage: 300 MG
     Route: 048
     Dates: start: 20111001, end: 20130105
  2. PRADAXA [Suspect]
     Indication: THROMBOSIS PROPHYLAXIS
  3. PRADAXA [Suspect]
     Indication: CEREBROVASCULAR ACCIDENT PROPHYLAXIS
  4. FERROUS SULFATE [Concomitant]
     Dosage: 325 MG
     Route: 048
  5. NEXIUM [Concomitant]
     Route: 048
  6. ADVAIR DISKUS [Concomitant]
     Dosage: DOSE PER APPLICATION:250-25MCG, DOSE INHALATION AEROSOL POWDER BREATH ACTIVATED
     Route: 065
  7. COMBIVENT [Concomitant]
     Dosage: DOSE PER APPLICATION:18-103/ACT AERO
     Route: 065
  8. LASIX [Concomitant]
     Dosage: 40 MG
     Route: 048
  9. LISINOPRIL [Concomitant]
     Dosage: 20 MG
     Route: 048
  10. LOVASTATIN [Concomitant]
     Dosage: 20 MG
     Route: 048
  11. METOPROLOL TARTRATE [Concomitant]
     Dosage: 25 MG
     Route: 048
  12. CARDIZEM [Concomitant]
     Dosage: 250 MG
     Route: 048
  13. PREDNISONE [Concomitant]
     Route: 048

REACTIONS (3)
  - Gastrointestinal haemorrhage [Fatal]
  - Atrial fibrillation [Fatal]
  - Septic shock [Fatal]
